FAERS Safety Report 7866411-7 (Version None)
Quarter: 2011Q4

REPORT INFORMATION
  Report Type: 
  Country: None (occurrence: None)
  Receive Date: 20111028
  Receipt Date: 20110613
  Transmission Date: 20120403
  Serious: No
  Sender: FDA-Public Use
  Company Number: US-GLAXOSMITHKLINE-A0931322A

PATIENT
  Age: 87 Year
  Sex: Female

DRUGS (9)
  1. LIPITOR [Concomitant]
  2. NASONEX [Concomitant]
  3. SIMVASTATIN [Concomitant]
  4. RAMIPRIL [Concomitant]
  5. PROAIR HFA [Concomitant]
  6. ISOSORBIDE DINITRATE [Concomitant]
  7. SINGULAIR [Concomitant]
  8. ADVAIR DISKUS 100/50 [Suspect]
     Indication: ASTHMA
     Dosage: 1PUFF SEE DOSAGE TEXT
     Route: 055
     Dates: start: 20110401
  9. GLYBURIDE [Concomitant]

REACTIONS (4)
  - EYELID OEDEMA [None]
  - SKIN WRINKLING [None]
  - EYE PRURITUS [None]
  - CIRCUMORAL OEDEMA [None]
